FAERS Safety Report 5947981-2 (Version None)
Quarter: 2008Q4

REPORT INFORMATION
  Report Type: 
  Country: None (occurrence: None)
  Receive Date: 20081107
  Receipt Date: 20081023
  Transmission Date: 20090506
  Serious: Yes (Hospitalization)
  Sender: FDA-Public Use
  Company Number: DSA_32615_2008

PATIENT
  Age: 75 Year
  Sex: Female

DRUGS (5)
  1. HERBESSER (HERBESSER - DILTIAZEM HYDROCHLORIDE) (NOT SPECIFIED [Suspect]
     Indication: DRUG USE FOR UNKNOWN INDICATION
     Dosage: (DF ORAL)
     Route: 048
  2. BEZAFIBRATE (BEZAFIBRATE ) [Suspect]
     Indication: DRUG USE FOR UNKNOWN INDICATION
     Dosage: (DF ORAL)
     Route: 048
  3. FERROUS SODIUM CITRATE (SODIUM FERROUS CITRATE) [Suspect]
     Indication: DRUG USE FOR UNKNOWN INDICATION
     Dosage: (DF ORAL)
     Route: 048
  4. CELECOXIB [Concomitant]
  5. GASTER /00706001/ [Concomitant]

REACTIONS (1)
  - PULMONARY EMBOLISM [None]
